FAERS Safety Report 7356417-9 (Version None)
Quarter: 2011Q1

REPORT INFORMATION
  Report Type: 
  Country: None (occurrence: None)
  Receive Date: 20110316
  Receipt Date: 20110311
  Transmission Date: 20110831
  Serious: Yes (Hospitalization, Other)
  Sender: FDA-Public Use
  Company Number: US-PFIZER INC-2011054494

PATIENT
  Age: 61 Year
  Sex: Female

DRUGS (4)
  1. TERIPARATIDE [Suspect]
     Dosage: UNK
  2. TERIPARATIDE [Suspect]
     Dosage: UNK
  3. TERIPARATIDE [Suspect]
     Dosage: UNK
  4. GEODON [Suspect]
     Dosage: UNK

REACTIONS (12)
  - CHRONIC OBSTRUCTIVE PULMONARY DISEASE [None]
  - LOWER RESPIRATORY TRACT INFECTION [None]
  - BONE DENSITY DECREASED [None]
  - AUTOIMMUNE DISORDER [None]
  - DYSPNOEA [None]
  - MUSCLE SPASMS [None]
  - STRESS FRACTURE [None]
  - ELECTROLYTE IMBALANCE [None]
  - BURNOUT SYNDROME [None]
  - OSTEOARTHRITIS [None]
  - MALAISE [None]
  - INJECTION SITE HAEMORRHAGE [None]
